FAERS Safety Report 12482587 (Version 7)
Quarter: 2018Q4

REPORT INFORMATION
  Report Type: Report from Study
  Country: US (occurrence: US)
  Receive Date: 20160620
  Receipt Date: 20181030
  Transmission Date: 20190204
  Serious: Yes (Other)
  Sender: FDA-Public Use
  Company Number: PHHY2016US083951

PATIENT
  Age: 70 Year
  Sex: Female

DRUGS (1)
  1. GILENYA [Suspect]
     Active Substance: FINGOLIMOD HYDROCHLORIDE
     Indication: MULTIPLE SCLEROSIS
     Dosage: QD
     Route: 048

REACTIONS (9)
  - Foot fracture [Unknown]
  - Fungal skin infection [Unknown]
  - Blood alkaline phosphatase increased [Unknown]
  - Dizziness [Unknown]
  - Herpes zoster [Recovered/Resolved]
  - Tooth infection [Unknown]
  - Diabetes mellitus [Unknown]
  - Abnormal loss of weight [Unknown]
  - Fall [Unknown]

NARRATIVE: CASE EVENT DATE: 20160302
